FAERS Safety Report 23081441 (Version 1)
Quarter: 2023Q4

REPORT INFORMATION
  Report Type: Spontaneous
  Country: BE (occurrence: BE)
  Receive Date: 20231018
  Receipt Date: 20231018
  Transmission Date: 20240109
  Serious: Yes (Hospitalization, Other)
  Sender: FDA-Public Use
  Company Number: BE-AMGEN-BELSP2023183847

PATIENT
  Age: 60 Year
  Sex: Female

DRUGS (1)
  1. PROLIA [Suspect]
     Active Substance: DENOSUMAB
     Indication: Osteoporosis
     Dosage: UNK
     Route: 065
     Dates: start: 2014, end: 2023

REACTIONS (8)
  - Hypocalcaemia [Unknown]
  - Coeliac disease [Unknown]
  - Hyperparathyroidism [Unknown]
  - Stress fracture [Unknown]
  - Foot fracture [Unknown]
  - Tibia fracture [Unknown]
  - Spinal disorder [Unknown]
  - Fall [Unknown]

NARRATIVE: CASE EVENT DATE: 20170101
